FAERS Safety Report 5597852-9 (Version None)
Quarter: 2007Q4

REPORT INFORMATION
  Report Type: 
  Country: None (occurrence: None)
  Receive Date: 20071221
  Receipt Date: 20070604
  Transmission Date: 20080405
  Serious: Yes (Other)
  Sender: FDA-Public Use
  Company Number: US200706000769

PATIENT
  Age: 55 Year
  Sex: Male

DRUGS (2)
  1. HUMULIN NPH (HUMAN INSULIN (RDNA ORIGIN)NPH)VIAL [Suspect]
     Indication: DIABETES MELLITUS
     Dosage: UNK
  2. HUMULIN R [Suspect]
     Indication: DIABETES MELLITUS
     Dosage: UNK

REACTIONS (3)
  - BLOOD GLUCOSE DECREASED [None]
  - HYPOGLYCAEMIA UNAWARENESS [None]
  - WRONG DRUG ADMINISTERED [None]
